FAERS Safety Report 8288859-1 (Version None)
Quarter: 2012Q2

REPORT INFORMATION
  Report Type: 
  Country: None (occurrence: None)
  Receive Date: 20120411
  Receipt Date: 20120405
  Transmission Date: 20120825
  Serious: Yes (Other)
  Sender: FDA-Public Use
  Company Number: 2012HGS-003469

PATIENT
  Age: 26 Year
  Sex: Female

DRUGS (1)
  1. BENLYSTA [Suspect]
     Dosage: 1 IN 28 D, INTRAVENOUS DRIP
     Dates: start: 20120309

REACTIONS (2)
  - HERPES ZOSTER [None]
  - SKIN LESION [None]
